FAERS Safety Report 25433227 (Version 1)
Quarter: 2025Q2

REPORT INFORMATION
  Report Type: Report from Study
  Country: US (occurrence: US)
  Receive Date: 20250613
  Receipt Date: 20250613
  Transmission Date: 20250717
  Serious: Yes (Other)
  Sender: TAKEDA
  Company Number: US-TAKEDA-2025TUS011758AA

PATIENT
  Sex: Female

DRUGS (21)
  1. IXAZOMIB [Suspect]
     Active Substance: IXAZOMIB
     Indication: Plasma cell myeloma recurrent
  2. IXAZOMIB [Suspect]
     Active Substance: IXAZOMIB
  3. IXAZOMIB [Suspect]
     Active Substance: IXAZOMIB
     Dosage: 3 MILLIGRAM, 1/WEEK
  4. BACTRIM [Concomitant]
     Active Substance: SULFAMETHOXAZOLE\TRIMETHOPRIM
  5. DARZALEX [Concomitant]
     Active Substance: DARATUMUMAB
  6. DEXAMETHASONE [Concomitant]
     Active Substance: DEXAMETHASONE
  7. LATANOPROST [Concomitant]
     Active Substance: LATANOPROST
  8. LORATADINE [Concomitant]
     Active Substance: LORATADINE
  9. LORAZEPAM [Concomitant]
     Active Substance: LORAZEPAM
  10. LOSARTAN [Concomitant]
     Active Substance: LOSARTAN
  11. OXYCODONE [Concomitant]
     Active Substance: OXYCODONE
  12. CALCIUM\VITAMIN D [Concomitant]
     Active Substance: CALCIUM\VITAMIN D
  13. DOCUSATE SODIUM\SENNA LEAF [Concomitant]
     Active Substance: DOCUSATE SODIUM\SENNA LEAF
  14. VALACYCLOVIR [Concomitant]
     Active Substance: VALACYCLOVIR HYDROCHLORIDE
  15. XARELTO [Concomitant]
     Active Substance: RIVAROXABAN
  16. XGEVA [Concomitant]
     Active Substance: DENOSUMAB
  17. HUMAN IMMUNOGLOBULIN G [Concomitant]
     Active Substance: HUMAN IMMUNOGLOBULIN G
  18. CALCIUM\CHOLECALCIFEROL [Concomitant]
     Active Substance: CALCIUM\CHOLECALCIFEROL
  19. SENNA AND DOCUSATE SODIUM [Concomitant]
     Active Substance: DOCUSATE SODIUM\SENNOSIDES
  20. SYNTHROID [Concomitant]
     Active Substance: LEVOTHYROXINE SODIUM
  21. CALCIUM\VITAMIN D [Concomitant]
     Active Substance: CALCIUM\VITAMIN D

REACTIONS (8)
  - Plasma cell myeloma [Not Recovered/Not Resolved]
  - Peripheral swelling [Unknown]
  - Neuralgia [Recovering/Resolving]
  - Dry skin [Unknown]
  - Dizziness [Recovering/Resolving]
  - Diarrhoea [Unknown]
  - Rash macular [Recovering/Resolving]
  - Nausea [Recovering/Resolving]
